FAERS Safety Report 9681742 (Version 1)
Quarter: 2013Q4

REPORT INFORMATION
  Report Type: Spontaneous
  Country: FR (occurrence: FR)
  Receive Date: 20131111
  Receipt Date: 20131111
  Transmission Date: 20140711
  Serious: Yes (Other)
  Sender: FDA-Public Use
  Company Number: FR-GLAXOSMITHKLINE-B0940002A

PATIENT
  Age: 71 Year
  Sex: Male

DRUGS (6)
  1. ZELITREX [Suspect]
     Indication: HERPES OPHTHALMIC
     Dosage: 3000MG PER DAY
     Route: 048
     Dates: start: 201304, end: 201310
  2. PARIET [Concomitant]
     Indication: GASTROOESOPHAGEAL REFLUX DISEASE
  3. SERETIDE DISKUS [Concomitant]
     Indication: CHRONIC OBSTRUCTIVE PULMONARY DISEASE
  4. KARDEGIC [Concomitant]
     Indication: PROPHYLAXIS
     Dosage: 160MG PER DAY
  5. SILODOSIN [Concomitant]
     Indication: BENIGN PROSTATIC HYPERPLASIA
     Dosage: 8MG PER DAY
  6. OXYCONTIN [Concomitant]
     Dosage: 15MG PER DAY

REACTIONS (8)
  - Hallucination [Not Recovered/Not Resolved]
  - Memory impairment [Not Recovered/Not Resolved]
  - Tremor [Not Recovered/Not Resolved]
  - Renal pain [Not Recovered/Not Resolved]
  - Somnolence [Not Recovered/Not Resolved]
  - Pruritus [Not Recovered/Not Resolved]
  - Abdominal discomfort [Not Recovered/Not Resolved]
  - Incorrect drug administration duration [Unknown]
